FAERS Safety Report 8122454-X (Version None)
Quarter: 2012Q1

REPORT INFORMATION
  Report Type: 
  Country: None (occurrence: None)
  Receive Date: 20120208
  Receipt Date: 20120127
  Transmission Date: 20120608
  Serious: Yes (Other)
  Sender: FDA-Public Use
  Company Number: US-ELI_LILLY_AND_COMPANY-US201011003425

PATIENT
  Sex: Female

DRUGS (4)
  1. FORTEO [Suspect]
  2. FORTEO [Suspect]
     Dosage: UNK, UNKNOWN
     Route: 065
  3. FORTEO [Suspect]
     Indication: OSTEOPOROSIS
     Dosage: UNK, UNKNOWN
     Route: 065
  4. FORTEO [Suspect]
     Dosage: UNK, UNKNOWN
     Route: 065

REACTIONS (11)
  - BACK PAIN [None]
  - NASOPHARYNGITIS [None]
  - OROPHARYNGEAL PAIN [None]
  - JOINT INJURY [None]
  - ARTHRALGIA [None]
  - FALL [None]
  - MUSCLE SPASMS [None]
  - PAIN IN EXTREMITY [None]
  - SURGERY [None]
  - ARTHROPATHY [None]
  - PYREXIA [None]
